FAERS Safety Report 18371635 (Version 2)
Quarter: 2021Q2

REPORT INFORMATION
  Report Type: Spontaneous
  Country: US (occurrence: US)
  Receive Date: 20201012
  Receipt Date: 20210519
  Transmission Date: 20210717
  Serious: No
  Sender: FDA-Public Use
  Company Number: US-PFIZER INC-2018144864

PATIENT
  Age: 64 Year
  Sex: Male
  Weight: 122.47 kg

DRUGS (1)
  1. SOMAVERT [Suspect]
     Active Substance: PEGVISOMANT
     Indication: ACROMEGALY
     Dosage: 30 MG, 1X/DAY [30 MG 1 INJECTION DAILY]

REACTIONS (3)
  - Syringe issue [Unknown]
  - Injection site reaction [Unknown]
  - Scar [Unknown]
